FAERS Safety Report 6631715-2 (Version None)
Quarter: 2010Q1

REPORT INFORMATION
  Report Type: 
  Country: None (occurrence: None)
  Receive Date: 20100312
  Receipt Date: 20100302
  Transmission Date: 20100710
  Serious: Yes (Hospitalization, Other)
  Sender: FDA-Public Use
  Company Number: US-PFIZER INC-2009313783

PATIENT
  Sex: Female

DRUGS (1)
  1. SUTENT [Suspect]
     Indication: METASTATIC RENAL CELL CARCINOMA
     Dosage: 50 MG ALTERNATING WITH 25 MG
     Route: 048
     Dates: start: 20090905

REACTIONS (4)
  - BLOOD PRESSURE INCREASED [None]
  - PRURITUS [None]
  - PYREXIA [None]
  - TOOTH ABSCESS [None]
